FAERS Safety Report 22250831 (Version 3)
Quarter: 2023Q2

REPORT INFORMATION
  Report Type: Other
  Country: US (occurrence: None)
  Receive Date: 20230425
  Receipt Date: 20230616
  Transmission Date: 20230722
  Serious: Yes (Other)
  Sender: FDA-Public Use
  Company Number: US-ROCHE-3336293

PATIENT
  Age: 68 Year
  Sex: Male
  Weight: 84.898 kg

DRUGS (2)
  1. RITUXAN [Suspect]
     Active Substance: RITUXIMAB
     Indication: Follicular lymphoma
     Route: 065
  2. BENDAMUSTINE [Concomitant]
     Active Substance: BENDAMUSTINE
     Indication: Follicular lymphoma

REACTIONS (5)
  - Myocardial infarction [Unknown]
  - Peripheral vascular disorder [Unknown]
  - Chronic obstructive pulmonary disease [Unknown]
  - Creatinine renal clearance decreased [Unknown]
  - Hypertension [Unknown]
